FAERS Safety Report 12963875 (Version 1)
Quarter: 2016Q4

REPORT INFORMATION
  Report Type: Spontaneous
  Country: CN (occurrence: CN)
  Receive Date: 20161122
  Receipt Date: 20161122
  Transmission Date: 20170207
  Serious: Yes (Hospitalization, Other)
  Sender: FDA-Public Use
  Company Number: CN-GLAXOSMITHKLINE-CN2016GSK170306

PATIENT
  Age: 6 Year
  Weight: 20.5 kg

DRUGS (10)
  1. ALCOHOL. [Suspect]
     Active Substance: ALCOHOL
     Indication: FURUNCLE
     Dosage: UNK
  2. DEXAMETHASONE. [Suspect]
     Active Substance: DEXAMETHASONE
     Dosage: 2 MG, UNK
     Route: 030
  3. BACTROBAN [Suspect]
     Active Substance: MUPIROCIN\MUPIROCIN CALCIUM
     Indication: FURUNCLE
     Dosage: UNK
     Route: 061
     Dates: start: 20160802, end: 20160802
  4. LORATADINE. [Suspect]
     Active Substance: LORATADINE
     Indication: HYPERSENSITIVITY
     Dosage: 5 MG, UNK
     Route: 048
  5. HYDROGEN PEROXIDE. [Suspect]
     Active Substance: HYDROGEN PEROXIDE
     Indication: FURUNCLE
     Dosage: UNK
  6. DEXAMETHASONE. [Suspect]
     Active Substance: DEXAMETHASONE
     Indication: RASH
     Dosage: 4 MG, UNK
  7. DEXAMETHASONE. [Suspect]
     Active Substance: DEXAMETHASONE
     Dosage: 5 MG, UNK
     Route: 042
     Dates: start: 20160803
  8. VITAMIN C [Suspect]
     Active Substance: ASCORBIC ACID
     Indication: PRODUCT USED FOR UNKNOWN INDICATION
     Dosage: 0.1 G, TID
     Route: 048
  9. PUDILAN [Suspect]
     Active Substance: HERBALS
     Indication: FURUNCLE
  10. CALCIUM [Suspect]
     Active Substance: CALCIUM
     Indication: RASH
     Dosage: 100 MG, UNK
     Route: 030

REACTIONS (11)
  - Dizziness [Recovering/Resolving]
  - Rash [Unknown]
  - Decreased appetite [Unknown]
  - Vomiting [Recovering/Resolving]
  - Anaphylactic reaction [Recovering/Resolving]
  - Pruritus [Unknown]
  - Condition aggravated [Unknown]
  - Abdominal pain upper [Recovering/Resolving]
  - Urticaria [Recovering/Resolving]
  - Type IV hypersensitivity reaction [Unknown]
  - Asthenia [Unknown]

NARRATIVE: CASE EVENT DATE: 20160802
